FAERS Safety Report 10352456 (Version 1)
Quarter: 2014Q3

REPORT INFORMATION
  Report Type: Spontaneous
  Country: US (occurrence: US)
  Receive Date: 20140730
  Receipt Date: 20140730
  Transmission Date: 20150326
  Serious: No
  Sender: FDA-Public Use
  Company Number: US-ABBVIE-14P-163-1225677-00

PATIENT
  Age: 35 Year
  Sex: Female
  Weight: 68.1 kg

DRUGS (3)
  1. SYNTHROID [Suspect]
     Active Substance: LEVOTHYROXINE SODIUM
     Dosage: 100MCG MONDAY THROUGH FRIDAY
     Dates: start: 201210, end: 201211
  2. SYNTHROID [Suspect]
     Active Substance: LEVOTHYROXINE SODIUM
     Indication: HYPOTHYROIDISM
     Dates: start: 2007, end: 2012
  3. SYNTHROID [Suspect]
     Active Substance: LEVOTHYROXINE SODIUM
     Indication: HYPOTHYROIDISM
     Dosage: 125MCG ON SATURDAY AND SUNDAY
     Dates: start: 201210, end: 201211

REACTIONS (2)
  - Weight increased [Recovered/Resolved]
  - Tri-iodothyronine decreased [Recovered/Resolved]

NARRATIVE: CASE EVENT DATE: 201310
